FAERS Safety Report 15539559 (Version 5)
Quarter: 2018Q4

REPORT INFORMATION
  Report Type: Spontaneous
  Country: US (occurrence: ES)
  Receive Date: 20181023
  Receipt Date: 20181123
  Transmission Date: 20190205
  Serious: Yes (Disabling, Other)
  Sender: FDA-Public Use
  Company Number: US-AMGEN-USASP2018143801

PATIENT
  Age: 70 Year
  Sex: Male
  Weight: 86.17 kg

DRUGS (5)
  1. REPATHA [Suspect]
     Active Substance: EVOLOCUMAB
     Indication: LOW DENSITY LIPOPROTEIN ABNORMAL
     Dosage: 140 MG, Q2WK
     Route: 058
     Dates: start: 20180913, end: 20181011
  2. REPATHA [Suspect]
     Active Substance: EVOLOCUMAB
     Indication: CORONARY ARTERY OCCLUSION
  3. LIVALO [Concomitant]
     Active Substance: PITAVASTATIN CALCIUM
     Indication: LOW DENSITY LIPOPROTEIN INCREASED
     Dosage: 2 MG, QD
     Dates: start: 20140406
  4. ZETIA [Concomitant]
     Active Substance: EZETIMIBE
     Indication: LOW DENSITY LIPOPROTEIN INCREASED
     Dosage: 10 UNK, QD
     Dates: start: 20140130
  5. ASA [Concomitant]
     Active Substance: ASPIRIN
     Dosage: 81 MG, BID
     Dates: start: 2000

REACTIONS (1)
  - Epidermal necrosis [Not Recovered/Not Resolved]

NARRATIVE: CASE EVENT DATE: 20181014
